FAERS Safety Report 8432505-0 (Version None)
Quarter: 2012Q2

REPORT INFORMATION
  Report Type: 
  Country: None (occurrence: None)
  Receive Date: 20120613
  Receipt Date: 20120612
  Transmission Date: 20120825
  Serious: No
  Sender: FDA-Public Use
  Company Number: PHHY2012BE040075

PATIENT
  Sex: Female

DRUGS (1)
  1. GILENYA [Suspect]
     Indication: MULTIPLE SCLEROSIS
     Dosage: 0.5 MG, QD
     Route: 048
     Dates: start: 20120507

REACTIONS (5)
  - DYSPNOEA [None]
  - VERTIGO [None]
  - CHEST DISCOMFORT [None]
  - DYSPEPSIA [None]
  - NAUSEA [None]
